FAERS Safety Report 23960001 (Version 2)
Quarter: 2024Q3

REPORT INFORMATION
  Report Type: Spontaneous
  Country: JP (occurrence: None)
  Receive Date: 20240611
  Receipt Date: 20240725
  Transmission Date: 20241017
  Serious: Yes (Life-Threatening)
  Sender: ASTRAZENECA
  Company Number: 2024A133231

PATIENT
  Age: 70 Year
  Sex: Male

DRUGS (1)
  1. NEXIUM [Suspect]
     Active Substance: ESOMEPRAZOLE MAGNESIUM
     Dosage: DOSE UNKNOWN NON-AZ PRODUCT
     Route: 048

REACTIONS (1)
  - Hypomagnesaemia [Unknown]
